FAERS Safety Report 6925131-3 (Version None)
Quarter: 2010Q3

REPORT INFORMATION
  Report Type: 
  Country: None (occurrence: None)
  Receive Date: 20100816
  Receipt Date: 20100804
  Transmission Date: 20110219
  Serious: Yes (Other)
  Sender: FDA-Public Use
  Company Number: US-PFIZER INC-2010098742

PATIENT
  Sex: Female
  Weight: 79.819 kg

DRUGS (1)
  1. CHANTIX [Suspect]
     Indication: SMOKING CESSATION THERAPY
     Dosage: 0.5 MG, 2X/DAY
     Dates: start: 20100101, end: 20100201

REACTIONS (5)
  - BOWEL MOVEMENT IRREGULARITY [None]
  - INSOMNIA [None]
  - MEMORY IMPAIRMENT [None]
  - TACHYPHRENIA [None]
  - WEIGHT FLUCTUATION [None]
